FAERS Safety Report 8013227-7 (Version None)
Quarter: 2011Q4

REPORT INFORMATION
  Report Type: 
  Country: None (occurrence: None)
  Receive Date: 20111229
  Receipt Date: 20111229
  Transmission Date: 20120403
  Serious: Yes (Life-Threatening)
  Sender: FDA-Public Use
  Company Number: None

PATIENT
  Age: 81 Year
  Sex: Male
  Weight: 77 kg

DRUGS (1)
  1. ERTAPENEM [Suspect]
     Indication: URINARY TRACT INFECTION
     Dosage: 1GM
     Route: 042
     Dates: start: 20110819, end: 20110823

REACTIONS (8)
  - ATRIAL FIBRILLATION [None]
  - CONVULSION [None]
  - CONFUSIONAL STATE [None]
  - APHASIA [None]
  - TREMOR [None]
  - GRAND MAL CONVULSION [None]
  - FALL [None]
  - UNRESPONSIVE TO STIMULI [None]
